FAERS Safety Report 9296750 (Version 1)
Quarter: 2013Q2

REPORT INFORMATION
  Report Type: Report from Study
  Country: KW (occurrence: KW)
  Receive Date: 20130517
  Receipt Date: 20130517
  Transmission Date: 20140414
  Serious: Yes (Death, Hospitalization, Other)
  Sender: FDA-Public Use
  Company Number: PHHO2009KW06633

PATIENT
  Age: 67 Year
  Sex: Male
  Weight: 70 kg

DRUGS (5)
  1. ZOLEDRONATE [Suspect]
     Indication: METASTASES TO BONE
     Dosage: 4 MG, EVERY 4 WEEKS
     Route: 042
     Dates: start: 20070920, end: 20090602
  2. VITAMIN D [Concomitant]
  3. CALCIUM [Concomitant]
  4. TRAMAL [Concomitant]
  5. OLFEN [Concomitant]

REACTIONS (13)
  - Prostate cancer [Fatal]
  - Prostatomegaly [Fatal]
  - Metastases to liver [Fatal]
  - Hepatic lesion [Fatal]
  - Necrosis [Fatal]
  - Urinary tract infection [Unknown]
  - Urinary retention [Recovered/Resolved with Sequelae]
  - Urinary incontinence [Recovered/Resolved with Sequelae]
  - Urine flow decreased [Recovered/Resolved with Sequelae]
  - Hydronephrosis [Unknown]
  - Renal cyst [Unknown]
  - Pharyngitis [Recovered/Resolved]
  - Oral infection [Recovered/Resolved]
